FAERS Safety Report 5703222-2 (Version None)
Quarter: 2008Q2

REPORT INFORMATION
  Report Type: 
  Country: None (occurrence: None)
  Receive Date: 20080411
  Receipt Date: 20080331
  Transmission Date: 20081010
  Serious: Yes (Hospitalization)
  Sender: FDA-Public Use
  Company Number: FR-GENENTECH-252618

PATIENT
  Age: 43 Year
  Sex: Male

DRUGS (7)
  1. MABTHERA [Suspect]
     Indication: RENAL TRANSPLANT
     Dates: start: 20070821
  2. NEXIUM [Suspect]
     Indication: ULCER
     Route: 042
     Dates: start: 20070828
  3. CELLCEPT [Suspect]
     Indication: RENAL TRANSPLANT
     Route: 042
     Dates: start: 20070824, end: 20070830
  4. INIPOMP [Suspect]
     Indication: DRUG USE FOR UNKNOWN INDICATION
     Route: 042
     Dates: start: 20070824, end: 20070825
  5. CIFLOX [Suspect]
     Indication: LUNG INFECTION
     Route: 042
     Dates: start: 20070824, end: 20070830
  6. PROGRAF [Suspect]
     Indication: DRUG USE FOR UNKNOWN INDICATION
     Route: 042
     Dates: start: 20070824, end: 20070826
  7. SOLU-MEDROL [Concomitant]
     Indication: DRUG USE FOR UNKNOWN INDICATION

REACTIONS (1)
  - THROMBOCYTOPENIA [None]
